FAERS Safety Report 8413236-X (Version None)
Quarter: 2012Q2

REPORT INFORMATION
  Report Type: 
  Country: None (occurrence: None)
  Receive Date: 20120605
  Receipt Date: 20120530
  Transmission Date: 20120825
  Serious: Yes (Hospitalization)
  Sender: FDA-Public Use
  Company Number: FR-ABBOTT-11P-056-0720416-00

PATIENT
  Age: 50 Year
  Sex: Male

DRUGS (10)
  1. CLOBAZAM [Suspect]
     Indication: PRODUCT USED FOR UNKNOWN INDICATION
     Route: 048
     Dates: end: 20110101
  2. RIMIFON [Concomitant]
     Indication: TUBERCULOSIS
     Route: 048
     Dates: start: 20101203, end: 20110103
  3. DEPAKENE [Suspect]
     Indication: EPILEPSY
     Route: 048
     Dates: start: 20101230, end: 20110103
  4. ATOVAQUONE [Suspect]
     Route: 048
     Dates: start: 20110101, end: 20110101
  5. MYAMBUTOL [Concomitant]
     Route: 048
     Dates: start: 20101123, end: 20101130
  6. MYAMBUTOL [Concomitant]
     Indication: TUBERCULOSIS
     Route: 048
     Dates: start: 20101123, end: 20110103
  7. DEPAKENE [Suspect]
     Route: 048
     Dates: end: 20101130
  8. LOVENOX [Suspect]
     Indication: PRODUCT USED FOR UNKNOWN INDICATION
     Route: 048
     Dates: start: 20101203, end: 20110103
  9. SULFAMETHOXAZOLE AND TRIMETHOPRIM [Suspect]
     Indication: PRODUCT USED FOR UNKNOWN INDICATION
     Route: 048
     Dates: start: 20101203, end: 20110103
  10. MOXIFLOXACIN [Concomitant]
     Indication: TUBERCULOSIS
     Dosage: DAILY DOSE: 400MG
     Route: 048
     Dates: start: 20101203, end: 20110103

REACTIONS (7)
  - EYELID OEDEMA [None]
  - THROMBOCYTOPENIA [None]
  - NEUTROPENIA [None]
  - GENERALISED ERYTHEMA [None]
  - TRANSAMINASES INCREASED [None]
  - BRONCHOPULMONARY ASPERGILLOSIS [None]
  - PULMONARY TUBERCULOSIS [None]
